FAERS Safety Report 25322837 (Version 1)
Quarter: 2025Q2

REPORT INFORMATION
  Report Type: Spontaneous
  Country: US (occurrence: US)
  Receive Date: 20250516
  Receipt Date: 20250516
  Transmission Date: 20250717
  Serious: No
  Sender: GLAXOSMITHKLINE
  Company Number: US-GSK-US2025AMR058754

PATIENT
  Sex: Female
  Weight: 82.993 kg

DRUGS (1)
  1. NUCALA [Suspect]
     Active Substance: MEPOLIZUMAB
     Indication: Breast cancer female
     Dosage: 100 MG, Q4W

REACTIONS (1)
  - Product dose omission issue [Unknown]
